FAERS Safety Report 7768421-7 (Version None)
Quarter: 2011Q3

REPORT INFORMATION
  Report Type: 
  Country: None (occurrence: None)
  Receive Date: 20110922
  Receipt Date: 20110621
  Transmission Date: 20111222
  Serious: No
  Sender: FDA-Public Use
  Company Number: US-ASTRAZENECA-2011SE38292

PATIENT
  Age: 706 Month
  Sex: Female

DRUGS (6)
  1. ATIVAN [Concomitant]
  2. PRISTQI [Concomitant]
  3. SEROQUEL XR [Suspect]
     Route: 048
  4. TRAZODONE HCL [Concomitant]
  5. SEROQUEL XR [Suspect]
     Route: 048
  6. LAMICTAL [Concomitant]

REACTIONS (8)
  - DEPRESSION [None]
  - THERAPEUTIC RESPONSE UNEXPECTED [None]
  - FATIGUE [None]
  - BURNOUT SYNDROME [None]
  - SEDATION [None]
  - TACHYPHRENIA [None]
  - INSOMNIA [None]
  - DRUG DOSE OMISSION [None]
